FAERS Safety Report 7183386-7 (Version None)
Quarter: 2010Q4

REPORT INFORMATION
  Report Type: 
  Country: None (occurrence: None)
  Receive Date: 20101222
  Receipt Date: 20101216
  Transmission Date: 20110411
  Serious: Yes (Other)
  Sender: FDA-Public Use
  Company Number: FR-MILLENNIUM PHARMACEUTICALS, INC.-2010-06253

PATIENT

DRUGS (3)
  1. VELCADE [Suspect]
     Indication: MULTIPLE MYELOMA
     Dosage: 1.3 MG/M2, UNK
     Route: 042
  2. MELPHALAN [Concomitant]
  3. PREDNISONE [Concomitant]

REACTIONS (2)
  - PHOTOPHOBIA [None]
  - VISUAL ACUITY REDUCED [None]
